FAERS Safety Report 5484133-7 (Version None)
Quarter: 2007Q4

REPORT INFORMATION
  Report Type: 
  Country: None (occurrence: None)
  Receive Date: 20071012
  Receipt Date: 20071009
  Transmission Date: 20080405
  Serious: Yes (Other)
  Sender: FDA-Public Use
  Company Number: CA-JNJFOC-20070803715

PATIENT
  Sex: Female

DRUGS (2)
  1. RISPERDAL CONSTA [Suspect]
     Indication: SCHIZOPHRENIA
     Route: 030
  2. LORAZEPAM [Concomitant]

REACTIONS (3)
  - BRONCHOSPASM [None]
  - PHARYNGEAL OEDEMA [None]
  - SWELLING FACE [None]
